FAERS Safety Report 7365689-6 (Version None)
Quarter: 2011Q1

REPORT INFORMATION
  Report Type: 
  Country: None (occurrence: None)
  Receive Date: 20110225
  Receipt Date: 20101214
  Transmission Date: 20110831
  Serious: No
  Sender: FDA-Public Use
  Company Number: 320197

PATIENT
  Age: 68 Year
  Sex: Female

DRUGS (4)
  1. VICTOZA [Suspect]
     Indication: TYPE 2 DIABETES MELLITUS
     Dosage: 1.8 MG, QD, SUBCUTANEOUS
     Route: 058
  2. WELLBUTRIN [Concomitant]
  3. NOVOLIN N [Suspect]
     Indication: TYPE 2 DIABETES MELLITUS
     Dosage: SUBCUTANEOUS
     Route: 058
  4. XANAX [Concomitant]

REACTIONS (10)
  - URINE ODOUR ABNORMAL [None]
  - GASTROOESOPHAGEAL REFLUX DISEASE [None]
  - NAUSEA [None]
  - CONSTIPATION [None]
  - WEIGHT DECREASED [None]
  - DECREASED APPETITE [None]
  - HEADACHE [None]
  - BLOOD GLUCOSE INCREASED [None]
  - HICCUPS [None]
  - DYSPEPSIA [None]
